FAERS Safety Report 7970680-2 (Version None)
Quarter: 2011Q4

REPORT INFORMATION
  Report Type: 
  Country: None (occurrence: None)
  Receive Date: 20111212
  Receipt Date: 20111209
  Transmission Date: 20120403
  Serious: Yes (Congenital Anomaly)
  Sender: FDA-Public Use
  Company Number: GXKR2011DE003521

PATIENT

DRUGS (3)
  1. BERLINSULIN H BASAL [Concomitant]
     Dosage: MATERNAL DOSE: 25 IU, QD
     Route: 064
  2. BERLINSULIN H NORMAL [Concomitant]
     Dosage: MATERNAL DOSE: 15 IU, TID TO 60 IU/DAY
     Route: 064
  3. LAMOTRIGINE [Suspect]
     Indication: EPILEPSY
     Dosage: MATERNAL DOSE: 25 MG, BID
     Route: 064

REACTIONS (2)
  - PULMONARY VALVE INCOMPETENCE [None]
  - FOETAL EXPOSURE DURING PREGNANCY [None]
